FAERS Safety Report 17960595 (Version 6)
Quarter: 2021Q1

REPORT INFORMATION
  Report Type: Spontaneous
  Country: US (occurrence: US)
  Receive Date: 20200630
  Receipt Date: 20210305
  Transmission Date: 20210419
  Serious: Yes (Hospitalization, Other)
  Sender: FDA-Public Use
  Company Number: US-GLAXOSMITHKLINE-US2020AMR111944

PATIENT
  Sex: Female

DRUGS (4)
  1. ZEJULA [Suspect]
     Active Substance: NIRAPARIB
     Indication: OVARIAN CANCER
     Dosage: 2 DF(CAPSULE), QD
     Route: 048
     Dates: start: 20200616, end: 20200622
  2. ZEJULA [Suspect]
     Active Substance: NIRAPARIB
     Dosage: 100 MG, QD
  3. ZEJULA [Suspect]
     Active Substance: NIRAPARIB
     Dosage: 100 MG
     Route: 065
  4. ZEJULA [Suspect]
     Active Substance: NIRAPARIB
     Dosage: 2 DF, QD
     Route: 048

REACTIONS (8)
  - Arthropathy [Not Recovered/Not Resolved]
  - Dizziness [Unknown]
  - Nephrolithiasis [Unknown]
  - Product dose omission in error [Unknown]
  - Hypertension [Unknown]
  - Nausea [Not Recovered/Not Resolved]
  - Insomnia [Not Recovered/Not Resolved]
  - Decreased appetite [Not Recovered/Not Resolved]
